FAERS Safety Report 6664204-X (Version None)
Quarter: 2010Q2

REPORT INFORMATION
  Report Type: 
  Country: None (occurrence: None)
  Receive Date: 20100401
  Receipt Date: 20100322
  Transmission Date: 20101027
  Serious: Yes (Other)
  Sender: FDA-Public Use
  Company Number: US-PFIZER INC-2010037302

PATIENT
  Sex: Female
  Weight: 86.168 kg

DRUGS (8)
  1. LIPITOR [Suspect]
     Indication: BLOOD CHOLESTEROL INCREASED
     Dosage: 10 MG, 1X/DAY
     Route: 048
     Dates: start: 20100315
  2. LIPITOR [Suspect]
     Indication: HYPERTENSION
  3. CADUET [Suspect]
     Indication: BLOOD CHOLESTEROL INCREASED
     Dosage: 5 MG/10 MG, ONCE DAILY
     Route: 048
     Dates: end: 20100314
  4. CADUET [Suspect]
     Indication: HYPERTENSION
  5. ACTOS [Concomitant]
     Indication: DIABETES MELLITUS
     Dosage: UNK
  6. VITAMIN B-12 [Concomitant]
     Dosage: UNK
  7. MULTI-VITAMINS [Concomitant]
     Dosage: UNK
  8. ACETYLSALICYLIC ACID [Concomitant]
     Dosage: UNK

REACTIONS (2)
  - CHEST DISCOMFORT [None]
  - DYSPNOEA [None]
